FAERS Safety Report 10572161 (Version 2)
Quarter: 2014Q4

REPORT INFORMATION
  Report Type: Spontaneous
  Country: US (occurrence: US)
  Receive Date: 20141108
  Receipt Date: 20141108
  Transmission Date: 20150529
  Serious: Yes (Other)
  Sender: FDA-Public Use
  Company Number: US-ASTRAZENECA-2013SE52557

PATIENT
  Age: 27516 Day
  Sex: Female
  Weight: 79.8 kg

DRUGS (12)
  1. METHOCARBAMOL. [Concomitant]
     Active Substance: METHOCARBAMOL
     Route: 048
  2. LYRICA [Concomitant]
     Active Substance: PREGABALIN
     Route: 048
     Dates: start: 20130405
  3. PREDNISONE. [Concomitant]
     Active Substance: PREDNISONE
     Dosage: 40 MG QAM AMD 10 MG QHS
     Route: 048
     Dates: start: 20130422
  4. LEVOTHYROXINE [Concomitant]
     Active Substance: LEVOTHYROXINE
     Route: 048
  5. AMLODIPINE [Concomitant]
     Active Substance: AMLODIPINE BESYLATE
     Route: 048
  6. PREMARIN [Concomitant]
     Active Substance: ESTROGENS, CONJUGATED
     Dosage: 0.625 MG/ GRAM, INSERT 0.5 GRAM BY VAGINAL ROUTE TWICE WEEKLY
  7. PREDNISONE. [Concomitant]
     Active Substance: PREDNISONE
  8. CELEBREX [Concomitant]
     Active Substance: CELECOXIB
     Route: 048
  9. TOPROL XL [Suspect]
     Active Substance: METOPROLOL SUCCINATE
     Route: 048
  10. HYDROCHLOROTHIAZIDE. [Concomitant]
     Active Substance: HYDROCHLOROTHIAZIDE
     Route: 048
  11. ZESTRIL [Suspect]
     Active Substance: LISINOPRIL
     Route: 048
  12. TRAMADOL [Concomitant]
     Active Substance: TRAMADOL
     Dosage: TAKE 1-2 BY ORAL ROUTE EVERY 4 HRS FOR 60 DAYS
     Route: 048
     Dates: start: 20130221

REACTIONS (7)
  - Intervertebral disc compression [Unknown]
  - Drug hypersensitivity [Unknown]
  - Headache [Unknown]
  - Fatigue [Unknown]
  - Temporal arteritis [Unknown]
  - Polymyalgia rheumatica [Unknown]
  - Hypersensitivity [Unknown]

NARRATIVE: CASE EVENT DATE: 20140127
